FAERS Safety Report 18986286 (Version 1)
Quarter: 2021Q1

REPORT INFORMATION
  Report Type: Spontaneous
  Country: TR (occurrence: TR)
  Receive Date: 20210309
  Receipt Date: 20210309
  Transmission Date: 20210420
  Serious: Yes (Death, Other)
  Sender: FDA-Public Use
  Company Number: TR-PFIZER INC-2021247435

PATIENT
  Age: 82 Year
  Sex: Male

DRUGS (22)
  1. CEFOPERAZONE [Suspect]
     Active Substance: CEFOPERAZONE
     Indication: PNEUMONIA
  2. COLISTIN [Suspect]
     Active Substance: COLISTIN
     Indication: FEBRILE NEUTROPENIA
     Dosage: UNK
     Dates: start: 201403
  3. MEROPENEM. [Suspect]
     Active Substance: MEROPENEM
     Indication: URINARY TRACT INFECTION
  4. TAZOBACTAM [Suspect]
     Active Substance: TAZOBACTAM
     Indication: FEBRILE NEUTROPENIA
     Dosage: UNK
     Dates: start: 201403
  5. COLISTIN [Suspect]
     Active Substance: COLISTIN
     Indication: PNEUMONIA
  6. VANCOMYCIN HCL [Suspect]
     Active Substance: VANCOMYCIN HYDROCHLORIDE
     Indication: FEBRILE NEUTROPENIA
     Dosage: UNK
     Dates: start: 201403
  7. CEFOPERAZONE [Suspect]
     Active Substance: CEFOPERAZONE
     Indication: URINARY TRACT INFECTION
  8. MEROPENEM. [Suspect]
     Active Substance: MEROPENEM
     Indication: FEBRILE NEUTROPENIA
     Dosage: UNK
     Dates: start: 201403
  9. VANCOMYCIN HCL [Suspect]
     Active Substance: VANCOMYCIN HYDROCHLORIDE
     Indication: URINARY TRACT INFECTION
  10. PIPERACILLIN. [Suspect]
     Active Substance: PIPERACILLIN SODIUM
     Indication: PNEUMONIA
  11. MEROPENEM. [Suspect]
     Active Substance: MEROPENEM
     Indication: PNEUMONIA
  12. CEFOPERAZONE [Suspect]
     Active Substance: CEFOPERAZONE
     Indication: FEBRILE NEUTROPENIA
     Dosage: UNK
     Dates: start: 201403
  13. SULBACTAM [Suspect]
     Active Substance: SULBACTAM
     Indication: FEBRILE NEUTROPENIA
     Dosage: UNK
     Dates: start: 201403
  14. SULBACTAM [Suspect]
     Active Substance: SULBACTAM
     Indication: URINARY TRACT INFECTION
  15. TAZOBACTAM [Suspect]
     Active Substance: TAZOBACTAM
     Indication: PNEUMONIA
  16. CYTOSINE ARABINOSIDE [Concomitant]
     Active Substance: CYTARABINE
     Indication: ACUTE MYELOID LEUKAEMIA
     Dosage: UNK
     Route: 058
  17. VANCOMYCIN HCL [Suspect]
     Active Substance: VANCOMYCIN HYDROCHLORIDE
     Indication: PNEUMONIA
  18. SULBACTAM [Suspect]
     Active Substance: SULBACTAM
     Indication: PNEUMONIA
  19. PIPERACILLIN. [Suspect]
     Active Substance: PIPERACILLIN SODIUM
     Indication: FEBRILE NEUTROPENIA
     Dosage: UNK
     Dates: start: 201403
  20. TAZOBACTAM [Suspect]
     Active Substance: TAZOBACTAM
     Indication: URINARY TRACT INFECTION
  21. COLISTIN [Suspect]
     Active Substance: COLISTIN
     Indication: URINARY TRACT INFECTION
  22. PIPERACILLIN. [Suspect]
     Active Substance: PIPERACILLIN SODIUM
     Indication: URINARY TRACT INFECTION

REACTIONS (2)
  - Fungaemia [Fatal]
  - Multiple organ dysfunction syndrome [Fatal]

NARRATIVE: CASE EVENT DATE: 201403
